FAERS Safety Report 5423069-4 (Version None)
Quarter: 2007Q3

REPORT INFORMATION
  Report Type: 
  Country: None (occurrence: None)
  Receive Date: 20070821
  Receipt Date: 20070807
  Transmission Date: 20080115
  Serious: Yes (Hospitalization)
  Sender: FDA-Public Use
  Company Number: HP200700077

PATIENT
  Age: 64 Year
  Sex: Male
  Weight: 49.9 kg

DRUGS (4)
  1. ACCUZYME{PAPAIN, UREA) OINTMENT [Suspect]
     Indication: WOUND
     Dosage: BID, TOPICAL
     Route: 061
     Dates: start: 20070701
  2. HALDOL /00027401/ (HALOPERIDOL) [Concomitant]
  3. COLACE (DOCUSATE SODIUM) [Concomitant]
  4. TRAMADOL HCL [Concomitant]

REACTIONS (3)
  - DRUG INEFFECTIVE [None]
  - PYREXIA [None]
  - WOUND INFECTION [None]
